FAERS Safety Report 7524765-5 (Version None)
Quarter: 2011Q2

REPORT INFORMATION
  Report Type: 
  Country: None (occurrence: None)
  Receive Date: 20110525
  Receipt Date: 20110511
  Transmission Date: 20111010
  Serious: Yes (Hospitalization)
  Sender: FDA-Public Use
  Company Number: DSA_46730_2011

PATIENT
  Age: 68 Year
  Sex: Female

DRUGS (17)
  1. INDERAL [Concomitant]
  2. ALBYL MINOR [Concomitant]
  3. MICARDIS [Concomitant]
  4. ZOLPIDEM TARTRATE [Concomitant]
  5. ENALAPRIL MALEATE (ENALAPRIL MALEATE) 20 MG [Suspect]
     Indication: ESSENTIAL HYPERTENSION
     Dosage: 20 MG QD,
     Dates: end: 20101225
  6. XENICAL [Concomitant]
  7. OMEPRAZOLE [Concomitant]
  8. PROPAVAN [Concomitant]
  9. CLEMASTINE FUMARATE [Concomitant]
  10. CITODAN [Concomitant]
  11. METFORMIN HCL [Suspect]
     Indication: TYPE 2 DIABETES MELLITUS
     Dosage: 2.5 MG QD,
     Dates: end: 20101225
  12. LIPITOR [Suspect]
     Indication: PRODUCT USED FOR UNKNOWN INDICATION
     Dosage: 20 MG QD, ORAL
     Route: 048
     Dates: end: 20101225
  13. TRIOBE [Concomitant]
  14. DIAZEPAM [Concomitant]
  15. MINDIAB [Concomitant]
  16. ZYPREXA [Concomitant]
  17. FUROSEMIDE [Concomitant]

REACTIONS (10)
  - METABOLIC ACIDOSIS [None]
  - URINARY RETENTION [None]
  - HYPOPHAGIA [None]
  - BLOOD PARATHYROID HORMONE DECREASED [None]
  - FATIGUE [None]
  - ASTHENIA [None]
  - RHABDOMYOLYSIS [None]
  - HYPOGLYCAEMIA [None]
  - LACTIC ACIDOSIS [None]
  - RENAL FAILURE ACUTE [None]
